FAERS Safety Report 6015310-4 (Version None)
Quarter: 2008Q4

REPORT INFORMATION
  Report Type: 
  Country: None (occurrence: None)
  Receive Date: 20081218
  Receipt Date: 20081205
  Transmission Date: 20090506
  Serious: Yes (Hospitalization)
  Sender: FDA-Public Use
  Company Number: 2008002515

PATIENT
  Sex: Male
  Weight: 61.5 kg

DRUGS (4)
  1. ERLOTINIB (ERLOTINIB) (TABLET) (ERLOTINIB) [Suspect]
     Indication: BILE DUCT CANCER
     Dosage: 150 MG, QD, ORAL
     Route: 048
     Dates: start: 20070828
  2. BEVACIZUMAB (INJECTION FOR INFUSION) [Suspect]
     Indication: BILE DUCT CANCER
     Dosage: 5 MG/KG, DAYS 1 AND 15, INTRAVENOUS
     Route: 042
     Dates: start: 20070828
  3. LISINOPRIL [Concomitant]
  4. OXYCONTIN [Concomitant]

REACTIONS (11)
  - ABDOMINAL PAIN [None]
  - ABDOMINAL PAIN UPPER [None]
  - CONSTIPATION [None]
  - FEELING ABNORMAL [None]
  - HAEMATEMESIS [None]
  - HYPERTENSION [None]
  - NAUSEA [None]
  - NECK PAIN [None]
  - PNEUMOMEDIASTINUM [None]
  - PNEUMOTHORAX [None]
  - VOMITING [None]
